FAERS Safety Report 7100610-7 (Version None)
Quarter: 2010Q4

REPORT INFORMATION
  Report Type: 
  Country: None (occurrence: None)
  Receive Date: 20101113
  Receipt Date: 20100222
  Transmission Date: 20110411
  Serious: No
  Sender: FDA-Public Use
  Company Number: US-ALLERGAN-1002322US

PATIENT
  Sex: Female

DRUGS (4)
  1. BOTOX COSMETIC [Suspect]
     Indication: SKIN WRINKLING
     Dosage: 48 UNITS, SINGLE
     Route: 030
     Dates: start: 20100203, end: 20100203
  2. WELLBUTRIN [Concomitant]
  3. ASPIRIN [Concomitant]
  4. ESTROGEN [Concomitant]

REACTIONS (2)
  - EYELID PTOSIS [None]
  - HEADACHE [None]
